FAERS Safety Report 21271212 (Version 2)
Quarter: 2022Q4

REPORT INFORMATION
  Report Type: Spontaneous
  Country: US (occurrence: US)
  Receive Date: 20220830
  Receipt Date: 20221107
  Transmission Date: 20230112
  Serious: No
  Sender: FDA-Public Use
  Company Number: US-BRISTOL-MYERS SQUIBB COMPANY-2022-098066

PATIENT
  Age: 62 Year
  Sex: Female
  Weight: 80.06 kg

DRUGS (1)
  1. REVLIMID [Suspect]
     Active Substance: LENALIDOMIDE
     Indication: Plasma cell myeloma
     Dosage: DAILY DAYS 1-21, EVERY 28 DAYS?EXPIRY DATE: 31-JAN-2024
     Route: 048
     Dates: start: 20200114

REACTIONS (2)
  - COVID-19 [Recovered/Resolved]
  - Hepatic enzyme increased [Not Recovered/Not Resolved]

NARRATIVE: CASE EVENT DATE: 20220701
